FAERS Safety Report 19462621 (Version 6)
Quarter: 2021Q4

REPORT INFORMATION
  Report Type: Report from Study
  Country: US (occurrence: US)
  Receive Date: 20210625
  Receipt Date: 20211001
  Transmission Date: 20220303
  Serious: Yes (Other)
  Sender: FDA-Public Use
  Company Number: US-ROCHE-2854309

PATIENT
  Age: 65 Year
  Sex: Male
  Weight: 148.2 kg

DRUGS (3)
  1. ATEZOLIZUMAB [Suspect]
     Active Substance: ATEZOLIZUMAB
     Indication: Malignant melanoma
     Route: 041
     Dates: start: 20210603, end: 20210603
  2. COBIMETINIB [Suspect]
     Active Substance: COBIMETINIB
     Indication: Malignant melanoma
     Route: 048
     Dates: start: 20210508, end: 20210618
  3. ELIQUIS [Concomitant]
     Active Substance: APIXABAN
     Indication: Pulmonary embolism

REACTIONS (5)
  - Embolism [Unknown]
  - Pneumonitis [Recovered/Resolved]
  - Hypoxia [Recovered/Resolved]
  - Oxygen saturation decreased [Unknown]
  - Hypoxia [Recovered/Resolved]

NARRATIVE: CASE EVENT DATE: 20210618
